FAERS Safety Report 7351140-9 (Version None)
Quarter: 2011Q1

REPORT INFORMATION
  Report Type: 
  Country: None (occurrence: None)
  Receive Date: 20110314
  Receipt Date: 20110303
  Transmission Date: 20110831
  Serious: Yes (Other)
  Sender: FDA-Public Use
  Company Number: US-ASTRAZENECA-2011SE12115

PATIENT
  Age: 48 Year
  Sex: Female

DRUGS (1)
  1. NEXIUM [Suspect]
     Route: 048

REACTIONS (4)
  - SLEEP DISORDER DUE TO A GENERAL MEDICAL CONDITION [None]
  - HIV TEST POSITIVE [None]
  - DYSPEPSIA [None]
  - DRUG DOSE OMISSION [None]
